FAERS Safety Report 6896410-3 (Version None)
Quarter: 2010Q3

REPORT INFORMATION
  Report Type: 
  Country: None (occurrence: None)
  Receive Date: 20100802
  Receipt Date: 20090217
  Transmission Date: 20110219
  Serious: No
  Sender: FDA-Public Use
  Company Number: US-PFIZER INC-2009171860

PATIENT
  Sex: Female

DRUGS (2)
  1. NORVASC [Suspect]
     Dosage: 5 MG/DAY
  2. COZAAR [Suspect]
     Dosage: 100MG/DAILY

REACTIONS (2)
  - DIZZINESS [None]
  - FATIGUE [None]
